FAERS Safety Report 12256801 (Version 1)
Quarter: 2016Q2

REPORT INFORMATION
  Report Type: Spontaneous
  Country: None (occurrence: None)
  Receive Date: 20160411
  Receipt Date: 20160411
  Transmission Date: 20160815
  Serious: Yes (Disabling)
  Sender: FDA-Public Use
  Company Number: None

PATIENT
  Age: 25 Year
  Sex: Female
  Weight: 63.5 kg

DRUGS (2)
  1. SERTRALINE [Concomitant]
     Active Substance: SERTRALINE HYDROCHLORIDE
  2. MIRENA [Suspect]
     Active Substance: LEVONORGESTREL

REACTIONS (11)
  - Muscle spasms [None]
  - Blood pressure increased [None]
  - Breast pain [None]
  - Panic attack [None]
  - Depression [None]
  - Arthralgia [None]
  - Haemorrhage [None]
  - Headache [None]
  - Palpitations [None]
  - Chest discomfort [None]
  - Feeling abnormal [None]

NARRATIVE: CASE EVENT DATE: 20151009
